FAERS Safety Report 11368628 (Version 1)
Quarter: 2015Q3

REPORT INFORMATION
  Report Type: Spontaneous
  Country: US (occurrence: US)
  Receive Date: 20150812
  Receipt Date: 20150812
  Transmission Date: 20151125
  Serious: No
  Sender: FDA-Public Use
  Company Number: US-ASTRAZENECA-2015SE71800

PATIENT
  Age: 53 Year
  Sex: Male

DRUGS (28)
  1. ARICEPT [Concomitant]
     Active Substance: DONEPEZIL HYDROCHLORIDE
     Route: 048
     Dates: start: 20150107
  2. OXYCODONE HCL [Concomitant]
     Active Substance: OXYCODONE HYDROCHLORIDE
     Dosage: EVERY 6 HOURS
     Route: 048
     Dates: start: 20150513
  3. LOPID [Concomitant]
     Active Substance: GEMFIBROZIL
     Route: 048
     Dates: start: 20140527
  4. HYDROCHLOROTHIAZIDE. [Concomitant]
     Active Substance: HYDROCHLOROTHIAZIDE
     Route: 048
  5. DUONEB [Concomitant]
     Active Substance: ALBUTEROL SULFATE\IPRATROPIUM BROMIDE
     Dosage: 0.5-2.5 (3) MG/3ML
     Route: 055
  6. ESCITALOPRAM OXALATE. [Concomitant]
     Active Substance: ESCITALOPRAM OXALATE
     Route: 048
     Dates: start: 20150107
  7. TRAZODONE HYDROCHLORIDE. [Concomitant]
     Active Substance: TRAZODONE HYDROCHLORIDE
     Route: 048
  8. PROAIR HFA [Concomitant]
     Active Substance: ALBUTEROL SULFATE
     Route: 055
     Dates: start: 20130923
  9. UREA. [Concomitant]
     Active Substance: UREA
     Dosage: BID
     Dates: start: 20150325
  10. ASPIRIN. [Concomitant]
     Active Substance: ASPIRIN
     Route: 048
     Dates: start: 20120806
  11. COUMADIN [Concomitant]
     Active Substance: WARFARIN SODIUM
     Route: 048
  12. VITAMIN D3 [Concomitant]
     Active Substance: CHOLECALCIFEROL
     Dosage: 2000 UNIT
     Route: 048
     Dates: start: 20130208
  13. CYCLOBENZAPRINE [Concomitant]
     Active Substance: CYCLOBENZAPRINE
     Route: 048
     Dates: start: 20140514
  14. ROSUVASTATIN CALCIUM. [Suspect]
     Active Substance: ROSUVASTATIN CALCIUM
     Route: 048
  15. LYRICA [Concomitant]
     Active Substance: PREGABALIN
     Route: 048
     Dates: start: 20150325
  16. HUMULIN R U [Concomitant]
  17. TRADJENTA [Concomitant]
     Active Substance: LINAGLIPTIN
     Route: 048
     Dates: start: 20140417
  18. FISH OIL [Concomitant]
     Active Substance: FISH OIL
     Route: 048
  19. MAGNESIUM OXIDE. [Concomitant]
     Active Substance: MAGNESIUM OXIDE
     Route: 048
  20. NITROSTAT [Concomitant]
     Active Substance: NITROGLYCERIN
     Dosage: 1 DF EVERY 5 MIN UNTIL REFIEF
     Route: 060
     Dates: start: 20140723
  21. ELIQUIS [Concomitant]
     Active Substance: APIXABAN
     Route: 048
     Dates: start: 20150629
  22. XLONOPIN [Concomitant]
     Route: 048
     Dates: start: 20141208
  23. XLONOPIN [Concomitant]
     Route: 048
     Dates: start: 20141209
  24. PRAVACHOL [Concomitant]
     Active Substance: PRAVASTATIN SODIUM
     Route: 048
  25. BENAZEPRIL HCL [Concomitant]
     Active Substance: BENAZEPRIL HYDROCHLORIDE
     Route: 048
  26. FLOMAX [Concomitant]
     Active Substance: TAMSULOSIN HYDROCHLORIDE
     Route: 048
  27. ARICEPT [Concomitant]
     Active Substance: DONEPEZIL HYDROCHLORIDE
     Route: 048
     Dates: start: 20150513
  28. COUMADIN [Concomitant]
     Active Substance: WARFARIN SODIUM
     Route: 048
     Dates: start: 20140818

REACTIONS (13)
  - Apnoea [Unknown]
  - Intervertebral disc disorder [Unknown]
  - Depression [Unknown]
  - Essential hypertension [Unknown]
  - Chronic kidney disease [Unknown]
  - Memory impairment [Unknown]
  - Diabetic neuropathy [Unknown]
  - Drug hypersensitivity [Unknown]
  - Atrial fibrillation [Unknown]
  - Cardiac failure congestive [Unknown]
  - Osteoarthritis [Unknown]
  - Pain [Unknown]
  - Diabetes mellitus inadequate control [Unknown]
